FAERS Safety Report 5125725-4 (Version None)
Quarter: 2006Q4

REPORT INFORMATION
  Report Type: 
  Country: None (occurrence: None)
  Receive Date: 20061012
  Receipt Date: 20060612
  Transmission Date: 20070319
  Serious: Yes (Hospitalization)
  Sender: FDA-Public Use
  Company Number: FRWYE720612JUN06

PATIENT
  Sex: Female
  Weight: 55 kg

DRUGS (3)
  1. ENBREL [Suspect]
     Indication: ANKYLOSING SPONDYLITIS
     Route: 058
     Dates: start: 20060407, end: 20060512
  2. KETOPROFEN [Concomitant]
     Route: 048
  3. CORTANCYL [Concomitant]
     Route: 048

REACTIONS (3)
  - COUGH [None]
  - DYSPNOEA [None]
  - RASH [None]
